FAERS Safety Report 10187518 (Version 1)
Quarter: 2014Q2

REPORT INFORMATION
  Report Type: Spontaneous
  Country: US (occurrence: US)
  Receive Date: 20140522
  Receipt Date: 20140522
  Transmission Date: 20141212
  Serious: No
  Sender: FDA-Public Use
  Company Number: US-SANOFI-AVENTIS-2013SA075575

PATIENT
  Age: 73 Year
  Sex: Male

DRUGS (3)
  1. LANTUS SOLOSTAR [Suspect]
     Indication: TYPE 2 DIABETES MELLITUS
     Dosage: DOSE:45 UNIT(S)
     Route: 051
  2. SOLOSTAR [Suspect]
     Dosage: DOSE:45 UNIT(S)
  3. JANUVIA [Concomitant]

REACTIONS (4)
  - Psychiatric symptom [Unknown]
  - Blood glucose increased [Unknown]
  - Drug ineffective [Unknown]
  - Drug dose omission [Unknown]
